FAERS Safety Report 7776930-X (Version None)
Quarter: 2011Q3

REPORT INFORMATION
  Report Type: 
  Country: None (occurrence: None)
  Receive Date: 20110926
  Receipt Date: 20110921
  Transmission Date: 20111222
  Serious: Yes (Death, Hospitalization)
  Sender: FDA-Public Use
  Company Number: US-ASTELLAS-2011US005643

PATIENT
  Sex: Female

DRUGS (2)
  1. PROGRAF [Suspect]
     Indication: RENAL TRANSPLANT
     Dosage: 4 MG, BID
     Route: 048
     Dates: start: 20090224, end: 20110412
  2. CHEMOTHERAPEUTICS NOS [Suspect]
     Indication: LEUKAEMIA
     Dosage: UNK
     Route: 065

REACTIONS (8)
  - RENAL GRAFT LOSS [None]
  - PANCYTOPENIA [None]
  - OEDEMA PERIPHERAL [None]
  - HYPOXIC-ISCHAEMIC ENCEPHALOPATHY [None]
  - PNEUMONIA [None]
  - CARDIAC ARREST [None]
  - ACUTE RESPIRATORY FAILURE [None]
  - LEUKAEMIA [None]
